FAERS Safety Report 7351580-8 (Version None)
Quarter: 2011Q1

REPORT INFORMATION
  Report Type: 
  Country: None (occurrence: None)
  Receive Date: 20110314
  Receipt Date: 20110304
  Transmission Date: 20110831
  Serious: Yes (Hospitalization, Other)
  Sender: FDA-Public Use
  Company Number: US-ELI_LILLY_AND_COMPANY-US201006005139

PATIENT
  Sex: Female

DRUGS (8)
  1. FLAGYL [Concomitant]
     Dosage: UNK, 3/D
  2. FORTEO [Suspect]
     Dosage: 20 UG, DAILY (1/D)
     Route: 065
     Dates: end: 20110228
  3. COPAXONE [Concomitant]
     Dosage: UNK, DAILY (1/D)
  4. PROBIOTICA [Concomitant]
  5. ROCEPHIN [Concomitant]
     Dosage: UNK, DAILY (1/D)
     Route: 042
  6. AGRYLIN [Concomitant]
     Dosage: UNK, 3/D
  7. PERCOCET [Concomitant]
     Dosage: UNK, AS NEEDED
  8. FORTEO [Suspect]
     Indication: OSTEOPOROSIS
     Dosage: 20 UG, DAILY (1/D)
     Route: 065
     Dates: start: 20100321

REACTIONS (8)
  - POST PROCEDURAL COMPLICATION [None]
  - HOSPITALISATION [None]
  - PLATELET COUNT INCREASED [None]
  - GENERAL PHYSICAL CONDITION ABNORMAL [None]
  - HEART RATE INCREASED [None]
  - APPENDICITIS [None]
  - ABSCESS [None]
  - BLOOD PRESSURE DECREASED [None]
